FAERS Safety Report 5849862-1 (Version None)
Quarter: 2008Q3

REPORT INFORMATION
  Report Type: 
  Country: None (occurrence: None)
  Receive Date: 20080818
  Receipt Date: 20080818
  Transmission Date: 20090109
  Serious: Yes (Other)
  Sender: FDA-Public Use
  Company Number: None

PATIENT
  Age: 20 Year
  Sex: Female
  Weight: 52.6173 kg

DRUGS (1)
  1. METRONIDAZOLE [Suspect]
     Indication: VAGINITIS BACTERIAL
     Dosage: 1 CAPLET 2 TIMES/DAY PO
     Route: 048
     Dates: start: 20080413, end: 20080423

REACTIONS (2)
  - URETHRAL DISORDER [None]
  - URINARY TRACT INFECTION [None]
